FAERS Safety Report 8306811-4 (Version None)
Quarter: 2012Q2

REPORT INFORMATION
  Report Type: 
  Country: None (occurrence: None)
  Receive Date: 20120424
  Receipt Date: 20120419
  Transmission Date: 20120825
  Serious: No
  Sender: FDA-Public Use
  Company Number: US-PFIZER INC-2012092910

PATIENT
  Sex: Female
  Weight: 63.492 kg

DRUGS (4)
  1. ESTRACE [Concomitant]
     Dosage: UNK, 2X/WEEK
     Route: 067
  2. AMITRIPTYLINE [Concomitant]
     Indication: PAIN
     Dosage: 12.5 MG, 1X/DAY
     Route: 048
  3. AMITRIPTYLINE [Concomitant]
     Indication: PELVIC PAIN
  4. TOVIAZ [Suspect]
     Indication: HYPERTONIC BLADDER
     Dosage: 4 MG, 1X/DAY
     Route: 048
     Dates: start: 20120316, end: 20120406

REACTIONS (4)
  - DIZZINESS [None]
  - PYREXIA [None]
  - DRY MOUTH [None]
  - FEELING ABNORMAL [None]
